FAERS Safety Report 5299809-4 (Version None)
Quarter: 2007Q2

REPORT INFORMATION
  Report Type: 
  Country: None (occurrence: None)
  Receive Date: 20070417
  Receipt Date: 20070409
  Transmission Date: 20071010
  Serious: Yes (Hospitalization, Other)
  Sender: FDA-Public Use
  Company Number: US-PFIZER INC-2007028148

PATIENT
  Sex: Female
  Weight: 58.5 kg

DRUGS (5)
  1. CELEBREX [Suspect]
     Indication: ARTHRITIS
  2. CELEBREX [Suspect]
     Indication: MUSCULOSKELETAL STIFFNESS
  3. CELEBREX [Suspect]
     Indication: HYPOKINESIA
  4. ZOLOFT [Suspect]
     Indication: DEPRESSION
  5. MAXZIDE [Concomitant]

REACTIONS (10)
  - ARTHRITIS [None]
  - BACK PAIN [None]
  - BODY HEIGHT DECREASED [None]
  - DEPRESSION [None]
  - HEART RATE IRREGULAR [None]
  - LIBIDO DECREASED [None]
  - MEMORY IMPAIRMENT [None]
  - MUSCULOSKELETAL STIFFNESS [None]
  - OSTEOPENIA [None]
  - THROMBOSIS [None]
